FAERS Safety Report 20989226 (Version 1)
Quarter: 2022Q2

REPORT INFORMATION
  Report Type: Report from Study
  Country: US (occurrence: US)
  Receive Date: 20220621
  Receipt Date: 20220621
  Transmission Date: 20220721
  Serious: Yes (Life-Threatening)
  Sender: FDA-Public Use
  Company Number: US-JAZZ-2021-US-027581

PATIENT
  Age: 36 Year
  Sex: Female

DRUGS (1)
  1. SOLRIAMFETOL [Suspect]
     Active Substance: SOLRIAMFETOL
     Indication: Narcolepsy
     Dosage: STARTED 6MO-1YR AGO

REACTIONS (1)
  - Depression [Unknown]
